FAERS Safety Report 9319266 (Version 1)
Quarter: 2013Q2

REPORT INFORMATION
  Report Type: Spontaneous
  Country: IL (occurrence: IL)
  Receive Date: 20130530
  Receipt Date: 20130530
  Transmission Date: 20140414
  Serious: Yes (Other)
  Sender: FDA-Public Use
  Company Number: IL-TEVA-407308ISR

PATIENT
  Age: 70 Year
  Sex: Male

DRUGS (3)
  1. ZYLET [Suspect]
     Dosage: 2-3 DROPS 4 TIMES A DAY
     Route: 047
  2. VOLTAREN [Suspect]
  3. CILOXAN [Suspect]

REACTIONS (1)
  - Toxic anterior segment syndrome [Recovered/Resolved]
